FAERS Safety Report 7037288-7 (Version None)
Quarter: 2010Q4

REPORT INFORMATION
  Report Type: 
  Country: None (occurrence: None)
  Receive Date: 20101011
  Receipt Date: 20101009
  Transmission Date: 20110411
  Serious: Yes (Life-Threatening, Hospitalization)
  Sender: FDA-Public Use
  Company Number: US-ROXANE LABORATORIES, INC.-2010-RO-01343RO

PATIENT
  Age: 4 Year
  Sex: Female

DRUGS (1)
  1. METHADONE [Suspect]
     Dates: start: 20101008, end: 20101008

REACTIONS (2)
  - CARDIAC ARREST [None]
  - OVERDOSE [None]
